FAERS Safety Report 15434239 (Version 4)
Quarter: 2022Q4

REPORT INFORMATION
  Report Type: Spontaneous
  Country: JP (occurrence: JP)
  Receive Date: 20180927
  Receipt Date: 20221208
  Transmission Date: 20230113
  Serious: Yes (Other)
  Sender: FDA-Public Use
  Company Number: JP-TEVA-2018-JP-957131

PATIENT
  Age: 77 Year
  Sex: Male

DRUGS (4)
  1. TACROLIMUS [Suspect]
     Active Substance: TACROLIMUS
     Indication: Rheumatoid arthritis
     Route: 065
  2. VORICONAZOLE [Suspect]
     Active Substance: VORICONAZOLE
     Indication: Scedosporium infection
     Route: 048
     Dates: start: 201601
  3. BETAMETHASONE [Suspect]
     Active Substance: BETAMETHASONE
     Indication: Rheumatoid arthritis
     Route: 048
  4. BETAMETHASONE [Suspect]
     Active Substance: BETAMETHASONE
     Indication: Rheumatoid arthritis
     Route: 048

REACTIONS (3)
  - Hepatic function abnormal [Unknown]
  - Scedosporium infection [Recovered/Resolved]
  - Fungal infection [Recovered/Resolved]
